FAERS Safety Report 15982468 (Version 1)
Quarter: 2019Q1

REPORT INFORMATION
  Report Type: Spontaneous
  Country: BE (occurrence: BE)
  Receive Date: 20190219
  Receipt Date: 20190219
  Transmission Date: 20190418
  Serious: Yes (Other)
  Sender: FDA-Public Use
  Company Number: BE-PFIZER INC-2019067800

PATIENT
  Age: 40 Year

DRUGS (8)
  1. PARACETAMOL EG [Suspect]
     Active Substance: ACETAMINOPHEN
     Dosage: 1 G, 3X/DAY (1 TABLET IN THE MORNING, NOON, EVENING.)
  2. SOTALOL SANDOZ [Suspect]
     Active Substance: SOTALOL
     Dosage: 160 MG 1X/DAY (0.5 DF MORNING, 0.5 DF EVENING)
  3. OMEPRAZOLE EG [Suspect]
     Active Substance: OMEPRAZOLE
     Dosage: 20 MG, 1X/DAY (1 TABLET IN THE MORNING)
  4. CO-APROVEL [Suspect]
     Active Substance: HYDROCHLOROTHIAZIDE\IRBESARTAN
     Dosage: 1 DF, 1X/DAY (300/25, 1 TABLET IN THE MORNING)
  5. QUININE [Suspect]
     Active Substance: QUININE
     Dosage: UNK
  6. CETIRIZINE EG [Suspect]
     Active Substance: CETIRIZINE HYDROCHLORIDE
     Dosage: 5 MG, 1X/DAY (5 MG BEFORE GOING TO SLEEP)
  7. LYRICA [Suspect]
     Active Substance: PREGABALIN
     Dosage: 75 MG, 1X/DAY
  8. IBUPROFEN EG [Suspect]
     Active Substance: IBUPROFEN
     Dosage: 1800 MG, 1X/DAY (DURING MEALS)

REACTIONS (2)
  - Gamma-glutamyltransferase increased [Unknown]
  - Hepatic steatosis [Unknown]
